FAERS Safety Report 19232217 (Version 2)
Quarter: 2021Q2

REPORT INFORMATION
  Report Type: Spontaneous
  Country: SE (occurrence: SE)
  Receive Date: 20210507
  Receipt Date: 20210517
  Transmission Date: 20210717
  Serious: Yes (Other)
  Sender: FDA-Public Use
  Company Number: SE-ACCORD-224392

PATIENT
  Age: 55 Year
  Sex: Female

DRUGS (4)
  1. FLUOROURACIL. [Suspect]
     Active Substance: FLUOROURACIL
     Indication: RECTAL CANCER METASTATIC
     Dosage: AND FOLFOXIRI + FOLFIRI
     Route: 042
     Dates: start: 20200527, end: 20201021
  2. AVASTIN [Suspect]
     Active Substance: BEVACIZUMAB
     Indication: RECTAL CANCER METASTATIC
     Dosage: BEVACIZUMAB X5
     Route: 042
     Dates: start: 20200819, end: 20201021
  3. OXALIPLATIN. [Suspect]
     Active Substance: OXALIPLATIN
     Indication: RECTAL CANCER METASTATIC
     Dosage: AND FOLFOXIRI
     Route: 042
     Dates: start: 20200527, end: 20200805
  4. IRINOTECAN [Suspect]
     Active Substance: IRINOTECAN
     Indication: RECTAL CANCER METASTATIC
     Dosage: AND FOLFOXIRI + FOLFI
     Route: 042
     Dates: start: 20200527, end: 20201021

REACTIONS (2)
  - Anal fistula [Not Recovered/Not Resolved]
  - Tumour ulceration [Not Recovered/Not Resolved]

NARRATIVE: CASE EVENT DATE: 20200822
